FAERS Safety Report 11699148 (Version 2)
Quarter: 2015Q4

REPORT INFORMATION
  Report Type: Spontaneous
  Country: BE (occurrence: BE)
  Receive Date: 20151104
  Receipt Date: 20151104
  Transmission Date: 20160304
  Serious: No
  Sender: FDA-Public Use
  Company Number: BE-ANTARES PHARMA, INC.-2015-LIT-ME-0075

PATIENT
  Age: 66 Year
  Sex: Male

DRUGS (1)
  1. METHOTREXATE [Suspect]
     Active Substance: METHOTREXATE
     Route: 031

REACTIONS (3)
  - Incorrect route of drug administration [None]
  - Off label use [None]
  - Blindness [None]
